FAERS Safety Report 20851669 (Version 1)
Quarter: 2022Q2

REPORT INFORMATION
  Report Type: Spontaneous
  Country: DK (occurrence: DK)
  Receive Date: 20220520
  Receipt Date: 20220520
  Transmission Date: 20220720
  Serious: Yes (Hospitalization)
  Sender: FDA-Public Use
  Company Number: None

PATIENT
  Age: 33 Year
  Sex: Male
  Weight: 186 kg

DRUGS (1)
  1. ISOTRETINOIN [Suspect]
     Active Substance: ISOTRETINOIN
     Indication: Acne
     Dosage: STRENGTH: 20 MG, UNIT DOSE: 20 MG, FREQUENCY TIME : 1 DAY, DURATION : 16 DAY
     Route: 048
     Dates: start: 20220321, end: 20220406

REACTIONS (4)
  - Inflammation [Recovered/Resolved]
  - Peripheral swelling [Unknown]
  - Arthritis [Unknown]
  - Rhabdomyolysis [Unknown]

NARRATIVE: CASE EVENT DATE: 20220101
